FAERS Safety Report 11787383 (Version 1)
Quarter: 2015Q4

REPORT INFORMATION
  Report Type: Spontaneous
  Country: US (occurrence: US)
  Receive Date: 20151130
  Receipt Date: 20151130
  Transmission Date: 20160305
  Serious: Yes (Other)
  Sender: FDA-Public Use
  Company Number: US-PFIZER INC-2015399974

PATIENT
  Age: 82 Year
  Sex: Female

DRUGS (10)
  1. METOPROLOL TARTRATE. [Concomitant]
     Active Substance: METOPROLOL TARTRATE
     Dosage: 25 MG, 2X/DAY
     Route: 048
  2. REVATIO [Suspect]
     Active Substance: SILDENAFIL CITRATE
     Dosage: 80 MG, 3X/DAY
     Route: 048
  3. NORVASC [Concomitant]
     Active Substance: AMLODIPINE BESYLATE
     Dosage: 5 MG, DAILY
     Route: 048
     Dates: start: 20150716
  4. VENTAVIS [Concomitant]
     Active Substance: ILOPROST
     Dosage: 20 UG/ML
     Route: 045
  5. OPSUMIT [Concomitant]
     Active Substance: MACITENTAN
     Dosage: 10 MG, DAILY
     Route: 048
  6. REVATIO [Suspect]
     Active Substance: SILDENAFIL CITRATE
     Indication: PULMONARY ARTERIAL HYPERTENSION
     Dosage: UNK
     Route: 048
  7. COLCRYS [Concomitant]
     Active Substance: COLCHICINE
     Dosage: 0.6 MG, ALTERNATE DAY (1/2 TAB EVERY OTHER DAY)
     Route: 048
  8. ASPIRIN. [Concomitant]
     Active Substance: ASPIRIN
     Dosage: 81 MG, DAILY
     Route: 048
     Dates: start: 20150218
  9. DIGOXIN. [Concomitant]
     Active Substance: DIGOXIN
     Dosage: 125 UG, ALTERNATE DAY
     Route: 048
     Dates: start: 20150716
  10. FUROSEMIDE. [Concomitant]
     Active Substance: FUROSEMIDE
     Dosage: 20 MG, DAILY (TAKE AN ADDITIONAL DOSE IN THE AFTERNOON ON MONDAY, WEDNESDAY AND FRIDAY)
     Dates: start: 20150312

REACTIONS (3)
  - Cardiac index decreased [Unknown]
  - Vascular resistance pulmonary increased [Unknown]
  - Product use issue [Unknown]
